FAERS Safety Report 7015333-2 (Version None)
Quarter: 2010Q3

REPORT INFORMATION
  Report Type: 
  Country: None (occurrence: None)
  Receive Date: 20100922
  Receipt Date: 20100909
  Transmission Date: 20110219
  Serious: No
  Sender: FDA-Public Use
  Company Number: 018515

PATIENT
  Sex: Female
  Weight: 51 kg

DRUGS (3)
  1. LACOSAMIDE [Suspect]
     Indication: PARTIAL SEIZURES
     Dosage: (100 MG BID ORAL)
     Route: 048
     Dates: start: 20090101
  2. KEPPRA [Suspect]
     Indication: PARTIAL SEIZURES
     Dosage: (1500 MG BID ORAL)
     Route: 048
  3. ENZYMES [Concomitant]

REACTIONS (4)
  - CONVULSION [None]
  - DIPLOPIA [None]
  - DRUG DOSE OMISSION [None]
  - SYNCOPE [None]
